FAERS Safety Report 9512274 (Version 1)
Quarter: 2013Q3

REPORT INFORMATION
  Report Type: Spontaneous
  Country: US (occurrence: US)
  Receive Date: 20130910
  Receipt Date: 20130910
  Transmission Date: 20140515
  Serious: No
  Sender: FDA-Public Use
  Company Number: US-SANOFI-AVENTIS-2013SA078321

PATIENT
  Sex: Female

DRUGS (1)
  1. AVAPRO [Suspect]
     Route: 065

REACTIONS (4)
  - Anxiety [Unknown]
  - Nervousness [Unknown]
  - Blood pressure abnormal [Unknown]
  - Feeling abnormal [Unknown]
